FAERS Safety Report 22654823 (Version 1)
Quarter: 2023Q2

REPORT INFORMATION
  Report Type: Spontaneous
  Country: FR (occurrence: FR)
  Receive Date: 20230629
  Receipt Date: 20230629
  Transmission Date: 20230722
  Serious: Yes (Other)
  Sender: FDA-Public Use
  Company Number: FR-BEH-2023160425

PATIENT
  Age: 66 Year
  Sex: Female
  Weight: 55 kg

DRUGS (7)
  1. HIZENTRA [Suspect]
     Active Substance: HUMAN IMMUNOGLOBULIN G
     Dosage: 8 GRAM
     Route: 058
     Dates: start: 20230314
  2. HIZENTRA [Suspect]
     Active Substance: HUMAN IMMUNOGLOBULIN G
     Dosage: 8 GRAM
     Route: 058
     Dates: start: 20230523
  3. HIZENTRA [Suspect]
     Active Substance: HUMAN IMMUNOGLOBULIN G
     Dosage: 8 GRAM
     Route: 058
     Dates: start: 20230605
  4. AZATHIOPRINE SODIUM [Concomitant]
     Active Substance: AZATHIOPRINE SODIUM
     Dosage: 3 TABLETS, TIW (EVERY SECOND DAY)
     Route: 065
  5. AZATHIOPRINE SODIUM [Concomitant]
     Active Substance: AZATHIOPRINE SODIUM
     Dosage: 2 TABLETS, QOD
     Route: 065
  6. MESTINON [Concomitant]
     Active Substance: PYRIDOSTIGMINE BROMIDE
     Dosage: 60 MILLIGRAM (1 TABLET EVERY 3 HOURS)
     Route: 065
  7. DOLIPRANE [Concomitant]
     Active Substance: ACETAMINOPHEN
     Dosage: 1000 MILLIGRAM, Q4H (EVERY 4 TO 6 HOURS)
     Route: 065

REACTIONS (7)
  - Hypotension [Unknown]
  - Hypotension [Unknown]
  - Dizziness [Unknown]
  - Malaise [Unknown]
  - Fall [Unknown]
  - Orthostatic hypotension [Unknown]
  - Vitamin B complex deficiency [Unknown]

NARRATIVE: CASE EVENT DATE: 20230523
